FAERS Safety Report 8586913-8 (Version None)
Quarter: 2012Q3

REPORT INFORMATION
  Report Type: 
  Country: None (occurrence: None)
  Receive Date: 20120810
  Receipt Date: 20120730
  Transmission Date: 20120928
  Serious: Yes (Other)
  Sender: FDA-Public Use
  Company Number: CHPA2011US015586

PATIENT
  Age: 82 Year
  Sex: Female

DRUGS (1)
  1. EXCEDRIN TENSION HEADACHE CAPLETS [Suspect]
     Indication: PROPHYLAXIS
     Dosage: 1 DF, TID
     Route: 048

REACTIONS (8)
  - BALANCE DISORDER [None]
  - OFF LABEL USE [None]
  - UNDERDOSE [None]
  - DRUG DEPENDENCE [None]
  - WITHDRAWAL SYNDROME [None]
  - THERAPEUTIC RESPONSE UNEXPECTED [None]
  - INCORRECT DRUG ADMINISTRATION DURATION [None]
  - LISTLESS [None]
